FAERS Safety Report 16468263 (Version 2)
Quarter: 2023Q2

REPORT INFORMATION
  Report Type: Spontaneous
  Country: IT (occurrence: IT)
  Receive Date: 20190624
  Receipt Date: 20230526
  Transmission Date: 20230721
  Serious: Yes (Other)
  Sender: FDA-Public Use
  Company Number: None

PATIENT
  Age: 30 Year
  Sex: Female

DRUGS (8)
  1. ARIPIPRAZOLE [Suspect]
     Active Substance: ARIPIPRAZOLE
     Indication: Product used for unknown indication
     Dosage: DATE OF LAST ADMINISTRATION 22-APR-2019
     Route: 048
     Dates: start: 20190422
  2. TOPIRAMATE [Suspect]
     Active Substance: TOPIRAMATE
     Indication: Product used for unknown indication
     Dosage: DATE OF LAST ADMINISTRATION 22-APR-2019
     Route: 048
     Dates: start: 20190422
  3. HALOPERIDOL [Suspect]
     Active Substance: HALOPERIDOL
     Indication: Product used for unknown indication
     Dosage: DATE OF LAST ADMINISTRATION 22-APR-2019
     Dates: start: 20190422
  4. GABAPENTIN [Suspect]
     Active Substance: GABAPENTIN
     Indication: Product used for unknown indication
     Dosage: DATE OF LAST ADMINISTRATION 22-APR-2019
     Route: 048
     Dates: start: 20190422
  5. BIPERIDEN [Suspect]
     Active Substance: BIPERIDEN
     Indication: Product used for unknown indication
     Dosage: DATE OF LAST ADMINISTRATION 22-APR-2019 DOSAGE FORM: UNSPECIFIED
     Route: 048
     Dates: start: 20190422
  6. LORMETAZEPAM [Suspect]
     Active Substance: LORMETAZEPAM
     Indication: Product used for unknown indication
     Dosage: DATE OF LAST ADMINISTRATION 22-APR-2019
     Route: 048
     Dates: start: 20190422
  7. ALPRAZOLAM [Suspect]
     Active Substance: ALPRAZOLAM
     Indication: Product used for unknown indication
     Dosage: DATE OF LAST ADMINISTRATION 22-APR-2019
     Route: 048
     Dates: start: 20190422
  8. TOPIRAMATE [Suspect]
     Active Substance: TOPIRAMATE
     Indication: Product used for unknown indication
     Dates: start: 20190422, end: 20190422

REACTIONS (4)
  - Pain [Unknown]
  - Intentional overdose [Unknown]
  - Coma [Unknown]
  - Intentional product use issue [Unknown]

NARRATIVE: CASE EVENT DATE: 20190422
